FAERS Safety Report 10192377 (Version 1)
Quarter: 2014Q2

REPORT INFORMATION
  Report Type: Spontaneous
  Country: CH (occurrence: CH)
  Receive Date: 20140523
  Receipt Date: 20140523
  Transmission Date: 20141212
  Serious: Yes (Hospitalization, Other)
  Sender: FDA-Public Use
  Company Number: CH-ACTAVIS-2014-11027

PATIENT
  Age: 82 Year
  Sex: Male

DRUGS (1)
  1. HYDROCORTISONE (UNKNOWN) [Suspect]
     Indication: TUBERCULOSIS
     Dosage: 60 MG, DAILY
     Route: 065

REACTIONS (4)
  - Histoplasmosis disseminated [Unknown]
  - Hypercorticoidism [Recovered/Resolved]
  - Hypertension [Unknown]
  - Diabetes mellitus [Unknown]
